FAERS Safety Report 20887629 (Version 5)
Quarter: 2022Q3

REPORT INFORMATION
  Report Type: Report from Study
  Country: MX (occurrence: MX)
  Receive Date: 20220528
  Receipt Date: 20220628
  Transmission Date: 20221027
  Serious: Yes (Death)
  Sender: FDA-Public Use
  Company Number: MX-NOVARTISPH-NVSC2022MX123345

PATIENT
  Sex: Male

DRUGS (4)
  1. TASIGNA [Suspect]
     Active Substance: NILOTINIB
     Indication: Foetal exposure during pregnancy
     Dosage: MARERNAL DOSE: 400 MG, Q12H
     Route: 064
     Dates: end: 202109
  2. ACETAMINOPHEN [Concomitant]
     Active Substance: ACETAMINOPHEN
     Indication: Foetal exposure during pregnancy
     Dosage: MOTHER DOSE (1, Q8H)
     Route: 064
     Dates: start: 20220315, end: 202203
  3. FOLIC ACID [Concomitant]
     Active Substance: FOLIC ACID
     Indication: Foetal exposure during pregnancy
     Dosage: MOTHER DOSE (QD)
     Route: 064
     Dates: start: 202109, end: 202202
  4. FERROUS SULFATE [Concomitant]
     Active Substance: FERROUS SULFATE
     Indication: Foetal exposure during pregnancy
     Dosage: MOTHER DOSE: QD
     Route: 064
     Dates: start: 202109, end: 202202

REACTIONS (5)
  - Newborn persistent pulmonary hypertension [Fatal]
  - Septic shock [Fatal]
  - Premature baby [Fatal]
  - Abdominal discomfort [Fatal]
  - Foetal exposure during pregnancy [Unknown]
